FAERS Safety Report 21144350 (Version 1)
Quarter: 2022Q3

REPORT INFORMATION
  Report Type: Spontaneous
  Country: US (occurrence: US)
  Receive Date: 20220728
  Receipt Date: 20220728
  Transmission Date: 20221026
  Serious: No
  Sender: FDA-Public Use
  Company Number: US-PFIZER INC-202201001887

PATIENT
  Age: 72 Year
  Sex: Female

DRUGS (1)
  1. EXEMESTANE [Suspect]
     Active Substance: EXEMESTANE
     Indication: Breast cancer female
     Dosage: UNK

REACTIONS (4)
  - Neoplasm progression [Unknown]
  - Nasal congestion [Unknown]
  - Headache [Unknown]
  - Fatigue [Unknown]
